FAERS Safety Report 6375923-7 (Version None)
Quarter: 2009Q3

REPORT INFORMATION
  Report Type: 
  Country: None (occurrence: None)
  Receive Date: 20090924
  Receipt Date: 20090922
  Transmission Date: 20100115
  Serious: Yes (Other)
  Sender: FDA-Public Use
  Company Number: US-JNJCH-2009025475

PATIENT
  Age: 75 Year
  Sex: Male
  Weight: 75.8 kg

DRUGS (4)
  1. LISTERINE WHITENING PRE-BRUSH RINSE [Suspect]
     Indication: DENTAL CARE
     Dosage: TEXT:3 TEASPOONFULS TWICE DAILY
     Route: 048
  2. GLYBURIDE [Concomitant]
     Indication: DIABETES MELLITUS
     Dosage: TEXT:ONE OR TWO DAILY
     Route: 065
  3. METFORMIN [Concomitant]
     Indication: DIABETES MELLITUS
     Dosage: TEXT:2 DAILY
     Route: 065
  4. FOSINOPRIL SODIUM [Concomitant]
     Indication: HYPERTENSION
     Dosage: TEXT:1 DAILY
     Route: 065

REACTIONS (1)
  - TOOTH DISORDER [None]
